FAERS Safety Report 21724527 (Version 1)
Quarter: 2022Q4

REPORT INFORMATION
  Report Type: Report from Study
  Country: US (occurrence: US)
  Receive Date: 20221213
  Receipt Date: 20221213
  Transmission Date: 20230113
  Serious: Yes (Other)
  Sender: FDA-Public Use
  Company Number: US-ABBVIE-4233950

PATIENT
  Sex: Male

DRUGS (1)
  1. IMBRUVICA [Suspect]
     Active Substance: IBRUTINIB
     Indication: Hypomagnesaemia
     Route: 048
     Dates: start: 20220708

REACTIONS (4)
  - Limb operation [Unknown]
  - Contusion [Not Recovered/Not Resolved]
  - Pulmonary mass [Unknown]
  - Haemoglobin decreased [Unknown]
